FAERS Safety Report 4863313-5 (Version None)
Quarter: 2005Q4

REPORT INFORMATION
  Report Type: 
  Country: None (occurrence: None)
  Receive Date: 20051219
  Receipt Date: 20051219
  Transmission Date: 20060501
  Serious: Yes (Other)
  Sender: FDA-Public Use
  Company Number: None

PATIENT
  Sex: Female

DRUGS (1)
  1. FLUROX [Suspect]
     Indication: OPHTHALMOLOGICAL EXAMINATION
     Dosage: ONE DROP OU ONCE EYES
     Dates: start: 20051021

REACTIONS (8)
  - APPLICATION SITE IRRITATION [None]
  - APPLICATION SITE PAIN [None]
  - CAUSTIC INJURY [None]
  - ERYTHEMA OF EYELID [None]
  - EYELID OEDEMA [None]
  - KERATITIS [None]
  - LACRIMATION INCREASED [None]
  - PHOTOPHOBIA [None]
